FAERS Safety Report 9469959 (Version 1)
Quarter: 2013Q3

REPORT INFORMATION
  Report Type: Spontaneous
  Country: US (occurrence: None)
  Receive Date: 20130820
  Receipt Date: 20130820
  Transmission Date: 20140515
  Serious: Yes (Other)
  Sender: FDA-Public Use
  Company Number: None

PATIENT
  Age: 24 Year
  Sex: Male
  Weight: 53.8 kg

DRUGS (8)
  1. HALOPERIDOL [Suspect]
     Indication: AGITATION
     Dosage: 2 TABLETS THEN TO 1 TABLET
     Route: 048
     Dates: start: 20130605, end: 20130606
  2. RISPERIDONE [Suspect]
     Indication: PSYCHOTIC DISORDER
     Dosage: 1 TABLET
     Route: 060
     Dates: start: 20130605, end: 20130607
  3. BENZTROPINE [Concomitant]
  4. DIPHENHYDRAMINE [Concomitant]
  5. LORAZEPAM [Concomitant]
  6. LORAZEPAM [Concomitant]
  7. ACETAMINOPHEN [Concomitant]
  8. NICOTINE INHALER [Concomitant]

REACTIONS (1)
  - Dystonia [None]
